FAERS Safety Report 8457770-5 (Version None)
Quarter: 2012Q2

REPORT INFORMATION
  Report Type: 
  Country: None (occurrence: None)
  Receive Date: 20120323
  Receipt Date: 20111004
  Transmission Date: 20120825
  Serious: Yes (Other)
  Sender: FDA-Public Use
  Company Number: 163-21880-11081351

PATIENT
  Age: 75 Year
  Sex: Female

DRUGS (8)
  1. REVLIMID [Suspect]
     Indication: CHRONIC LYMPHOCYTIC LEUKAEMIA
     Dosage: 2.5MG, 1 IN 2 D, PO
     Route: 048
     Dates: start: 20110726
  2. VITAMIN B12 [Concomitant]
  3. BENADRYL [Concomitant]
  4. PRILOSEC [Concomitant]
  5. CALCIUM CARBONATE [Concomitant]
  6. FOLIC ACID [Concomitant]
  7. HORMONES (HORMONES) [Concomitant]
  8. VITAMIN D [Concomitant]

REACTIONS (4)
  - PLATELET COUNT DECREASED [None]
  - DRY SKIN [None]
  - ERYTHEMA [None]
  - PRURITUS [None]
